FAERS Safety Report 16079270 (Version 1)
Quarter: 2019Q1

REPORT INFORMATION
  Report Type: Spontaneous
  Country: ZA (occurrence: ZA)
  Receive Date: 20190315
  Receipt Date: 20190315
  Transmission Date: 20190418
  Serious: Yes (Hospitalization)
  Sender: FDA-Public Use
  Company Number: ZA-NOVOPROD-651339

PATIENT
  Age: 67 Year
  Sex: Female

DRUGS (6)
  1. ESTROFEM (ESTRADIOL) [Suspect]
     Active Substance: ESTRADIOL
     Indication: HORMONE REPLACEMENT THERAPY
     Dosage: 1 MG
     Route: 048
  2. CELEBREX [Concomitant]
     Active Substance: CELECOXIB
  3. COXFLAM [Concomitant]
     Active Substance: MELOXICAM
  4. ASPAVOR [Concomitant]
     Active Substance: ATORVASTATIN
  5. TAREG [Concomitant]
     Active Substance: VALSARTAN
  6. AMLO C [Concomitant]

REACTIONS (1)
  - Surgery [Unknown]
